FAERS Safety Report 10309596 (Version 1)
Quarter: 2014Q3

REPORT INFORMATION
  Report Type: Spontaneous
  Country: US (occurrence: US)
  Receive Date: 20140717
  Receipt Date: 20140717
  Transmission Date: 20150326
  Serious: Yes (Other)
  Sender: FDA-Public Use
  Company Number: US-UCBSA-2014005222

PATIENT
  Sex: Female

DRUGS (2)
  1. FRISIUM [Suspect]
     Active Substance: CLOBAZAM
     Dosage: 30 MG
  2. KEPPRA [Suspect]
     Active Substance: LEVETIRACETAM
     Dosage: 3000 MG DAILY

REACTIONS (3)
  - Partial seizures [Unknown]
  - Generalised tonic-clonic seizure [Unknown]
  - Aura [Unknown]
